FAERS Safety Report 16055236 (Version 1)
Quarter: 2019Q1

REPORT INFORMATION
  Report Type: Spontaneous
  Country: US (occurrence: US)
  Receive Date: 20190311
  Receipt Date: 20190311
  Transmission Date: 20190418
  Serious: No
  Sender: FDA-Public Use
  Company Number: US-GLAXOSMITHKLINE-US2019040292

PATIENT
  Sex: Female

DRUGS (1)
  1. CARVEDILOL. [Suspect]
     Active Substance: CARVEDILOL
     Indication: PRODUCT USED FOR UNKNOWN INDICATION
     Dosage: UNK (3 TIMES)

REACTIONS (6)
  - Dizziness [Unknown]
  - Vision blurred [Unknown]
  - Heart rate increased [Unknown]
  - Dysphonia [Unknown]
  - Pharyngeal oedema [Unknown]
  - Product substitution issue [Unknown]
